FAERS Safety Report 11451495 (Version 2)
Quarter: 2015Q4

REPORT INFORMATION
  Report Type: Spontaneous
  Country: DE (occurrence: DE)
  Receive Date: 20150903
  Receipt Date: 20151009
  Transmission Date: 20160304
  Serious: Yes (Life-Threatening)
  Sender: FDA-Public Use
  Company Number: DE-ROCHE-1629999

PATIENT
  Age: 53 Year
  Sex: Male

DRUGS (1)
  1. LUCENTIS [Suspect]
     Active Substance: RANIBIZUMAB
     Indication: AGE-RELATED MACULAR DEGENERATION
     Dosage: SIX TIME INTO THE RIGHT EYE AND SIX TIME INTO THE LEFT EYE.
     Route: 050
     Dates: start: 201405, end: 201505

REACTIONS (1)
  - Myocardial infarction [Unknown]

NARRATIVE: CASE EVENT DATE: 20150811
